FAERS Safety Report 15200946 (Version 1)
Quarter: 2018Q3

REPORT INFORMATION
  Report Type: Spontaneous
  Country: US (occurrence: US)
  Receive Date: 20180726
  Receipt Date: 20180726
  Transmission Date: 20181010
  Serious: No
  Sender: FDA-Public Use
  Company Number: US-TEVA-2018-US-931851

PATIENT
  Sex: Female

DRUGS (3)
  1. NABUMETONE. [Suspect]
     Active Substance: NABUMETONE
     Indication: SYSTEMIC LUPUS ERYTHEMATOSUS
  2. NABUMETONE. [Suspect]
     Active Substance: NABUMETONE
     Indication: OSTEOARTHRITIS
  3. NABUMETONE. [Suspect]
     Active Substance: NABUMETONE
     Indication: RHEUMATOID ARTHRITIS
     Dates: start: 20180720, end: 20180720

REACTIONS (2)
  - Multiple allergies [Unknown]
  - Dyspepsia [Unknown]

NARRATIVE: CASE EVENT DATE: 20180720
